FAERS Safety Report 9835050 (Version 2)
Quarter: 2014Q1

REPORT INFORMATION
  Report Type: Spontaneous
  Country: CA (occurrence: CA)
  Receive Date: 20140122
  Receipt Date: 20140210
  Transmission Date: 20141002
  Serious: Yes (Hospitalization, Other)
  Sender: FDA-Public Use
  Company Number: CA-JNJFOC-20140107650

PATIENT
  Age: 3 Year
  Sex: 0

DRUGS (1)
  1. TRAMADOL HYDROCHLORIDE [Suspect]
     Indication: INTENTIONAL DRUG MISUSE
     Route: 048

REACTIONS (9)
  - Diarrhoea [Unknown]
  - Constipation [Unknown]
  - Blood glucose decreased [Recovered/Resolved]
  - Heart rate decreased [Recovered/Resolved]
  - Intentional drug misuse [Unknown]
  - Drug diversion [Unknown]
  - Pallor [Recovered/Resolved]
  - Hypotonia [Recovered/Resolved]
  - Lethargy [Recovered/Resolved]
